FAERS Safety Report 6065006-8 (Version None)
Quarter: 2009Q1

REPORT INFORMATION
  Report Type: 
  Country: None (occurrence: None)
  Receive Date: 20090204
  Receipt Date: 20090127
  Transmission Date: 20090719
  Serious: Yes (Hospitalization)
  Sender: FDA-Public Use
  Company Number: FR-ASTRAZENECA-2009CG00286

PATIENT
  Age: 31631 Day
  Sex: Female

DRUGS (9)
  1. FLODIL [Suspect]
     Indication: HYPERTENSION
     Route: 048
  2. ARICEPT [Suspect]
     Indication: DEMENTIA ALZHEIMER'S TYPE
     Route: 048
     Dates: end: 20080620
  3. ARAVA [Suspect]
     Indication: RHEUMATOID ARTHRITIS
     Route: 048
  4. LANZOR [Suspect]
     Indication: OESOPHAGITIS
     Route: 048
  5. CORTANCYL [Concomitant]
  6. RILMENIDINE [Concomitant]
     Route: 048
  7. DIFFU K [Concomitant]
  8. CACIT VITAMINE D3 [Concomitant]
  9. ACTONEL [Concomitant]

REACTIONS (3)
  - CHOLESTASIS [None]
  - MALAISE [None]
  - VOMITING [None]
